FAERS Safety Report 24043176 (Version 3)
Quarter: 2024Q3

REPORT INFORMATION
  Report Type: Report from Study
  Country: US (occurrence: US)
  Receive Date: 20240702
  Receipt Date: 20240729
  Transmission Date: 20241017
  Serious: Yes (Other)
  Sender: ABBVIE
  Company Number: US-ABBVIE-5822359

PATIENT
  Age: 39 Year
  Sex: Female

DRUGS (1)
  1. ORILISSA [Suspect]
     Active Substance: ELAGOLIX SODIUM
     Indication: Product used for unknown indication
     Route: 048
     Dates: start: 20220613

REACTIONS (8)
  - Small intestinal resection [Recovering/Resolving]
  - Appendicectomy [Recovering/Resolving]
  - Skin operation [Recovering/Resolving]
  - Colectomy [Recovering/Resolving]
  - Colectomy [Recovering/Resolving]
  - Endometriosis [Unknown]
  - Stoma creation [Recovering/Resolving]
  - Stoma creation [Unknown]

NARRATIVE: CASE EVENT DATE: 20240201
